FAERS Safety Report 8068848-2 (Version None)
Quarter: 2012Q1

REPORT INFORMATION
  Report Type: 
  Country: None (occurrence: None)
  Receive Date: 20120125
  Receipt Date: 20120118
  Transmission Date: 20120608
  Serious: Yes (Other)
  Sender: FDA-Public Use
  Company Number: US-BIOGENIDEC-2012BI002446

PATIENT
  Age: 63 Year
  Sex: Female

DRUGS (3)
  1. TYSABRI [Suspect]
     Indication: MULTIPLE SCLEROSIS
     Route: 042
     Dates: start: 20070926, end: 20081231
  2. TYSABRI [Suspect]
     Route: 042
     Dates: start: 20090609, end: 20101216
  3. TYSABRI [Suspect]
     Route: 042
     Dates: start: 20110629, end: 20111114

REACTIONS (1)
  - CERVIX CANCER METASTATIC [None]
